FAERS Safety Report 21254076 (Version 1)
Quarter: 2022Q3

REPORT INFORMATION
  Report Type: Spontaneous
  Country: US (occurrence: US)
  Receive Date: 20220825
  Receipt Date: 20220825
  Transmission Date: 20221026
  Serious: Yes (Other)
  Sender: FDA-Public Use
  Company Number: US-LUPIN PHARMACEUTICALS INC.-2022-10532

PATIENT
  Age: 6 Decade

DRUGS (4)
  1. CLOBETASOL [Suspect]
     Active Substance: CLOBETASOL
     Indication: Palmar-plantar erythrodysaesthesia syndrome
     Dosage: UNK, 0.05 PERCENT OINTMENT
     Route: 065
  2. UREA [Suspect]
     Active Substance: UREA
     Indication: Palmar-plantar erythrodysaesthesia syndrome
     Dosage: UNK
     Route: 065
  3. REGORAFENIB [Concomitant]
     Active Substance: REGORAFENIB
     Indication: Medullary thyroid cancer
     Dosage: 120 MG, 120MG DAILY FOR 3 WEEKS ON, ALTERNATING WITH 1 WEEK OFF
     Route: 065
  4. ACITRETIN [Concomitant]
     Active Substance: ACITRETIN
     Indication: Palmar-plantar erythrodysaesthesia syndrome
     Dosage: 10 MG, QD
     Route: 065

REACTIONS (2)
  - Drug ineffective for unapproved indication [Unknown]
  - Off label use [Unknown]
